FAERS Safety Report 8938764 (Version 2)
Quarter: 2012Q4

REPORT INFORMATION
  Report Type: 
  Country: JP (occurrence: JP)
  Receive Date: 20121203
  Receipt Date: 20121220
  Transmission Date: 20130627
  Serious: Yes (Hospitalization)
  Sender: FDA-Public Use
  Company Number: JP-JNJFOC-20121112522

PATIENT
  Age: 61 Year
  Sex: Female
  Weight: 69 kg

DRUGS (11)
  1. REMICADE [Suspect]
     Indication: COLITIS ULCERATIVE
     Route: 042
     Dates: start: 20120919
  2. REMICADE [Suspect]
     Indication: COLITIS ULCERATIVE
     Route: 042
     Dates: start: 20120822
  3. REMICADE [Suspect]
     Indication: COLITIS ULCERATIVE
     Route: 042
     Dates: start: 20120808
  4. PREDONEMA [Suspect]
     Indication: COLITIS ULCERATIVE
     Dosage: 1 ampule/day
     Route: 054
     Dates: start: 20120307, end: 20120321
  5. PREDNISOLONE [Suspect]
     Indication: COLITIS ULCERATIVE
     Route: 048
     Dates: start: 20120321, end: 20120530
  6. LEUKERIN [Suspect]
     Indication: COLITIS ULCERATIVE
     Route: 048
     Dates: start: 20120328, end: 20120919
  7. RINDERON [Suspect]
     Indication: COLITIS ULCERATIVE
     Dosage: 1 mg/once
     Route: 054
     Dates: start: 20120626, end: 20120714
  8. ASACOL [Concomitant]
     Indication: COLITIS ULCERATIVE
     Route: 048
     Dates: start: 201202
  9. TRANCOLON [Concomitant]
     Indication: IRRITABLE BOWEL SYNDROME
     Dosage: 4 tab
     Route: 048
     Dates: start: 201201
  10. GASTER [Concomitant]
     Indication: PROPHYLAXIS AGAINST GASTROINTESTINAL ULCER
     Route: 048
  11. MIYA-BM [Concomitant]
     Indication: COLITIS ULCERATIVE
     Dosage: 3 tab
     Route: 048

REACTIONS (2)
  - Cytomegalovirus enterocolitis [Recovering/Resolving]
  - Drug ineffective [Unknown]
